FAERS Safety Report 20345808 (Version 1)
Quarter: 2022Q1

REPORT INFORMATION
  Report Type: Report from Study
  Country: GB (occurrence: GB)
  Receive Date: 20220118
  Receipt Date: 20220118
  Transmission Date: 20220423
  Serious: Yes (Hospitalization)
  Sender: FDA-Public Use
  Company Number: GB-ABBVIE-22K-167-4237596-00

PATIENT
  Age: 13 Year
  Sex: Male

DRUGS (1)
  1. HUMIRA [Suspect]
     Active Substance: ADALIMUMAB
     Indication: Vasculitis
     Route: 058
     Dates: end: 202112

REACTIONS (3)
  - Seizure [Unknown]
  - Swelling [Unknown]
  - Off label use [Unknown]

NARRATIVE: CASE EVENT DATE: 20210101
